FAERS Safety Report 5324791-0 (Version None)
Quarter: 2007Q2

REPORT INFORMATION
  Report Type: 
  Country: None (occurrence: None)
  Receive Date: 20070515
  Receipt Date: 20070504
  Transmission Date: 20071010
  Serious: Yes (Other)
  Sender: FDA-Public Use
  Company Number: PHNR2007AU01070

PATIENT
  Sex: Female

DRUGS (1)
  1. CLOZARIL [Suspect]
     Indication: SCHIZOPHRENIA
     Dosage: 12-425 MG DAILY
     Route: 048
     Dates: start: 19960429

REACTIONS (2)
  - DILATATION ATRIAL [None]
  - ECHOGRAPHY ABNORMAL [None]
